FAERS Safety Report 8471976-0 (Version None)
Quarter: 2012Q2

REPORT INFORMATION
  Report Type: 
  Country: None (occurrence: None)
  Receive Date: 20120627
  Receipt Date: 20120618
  Transmission Date: 20120825
  Serious: Yes (Hospitalization)
  Sender: FDA-Public Use
  Company Number: DE-ASTRAZENECA-2012SE40690

PATIENT
  Age: 73 Year
  Sex: Female
  Weight: 59.5 kg

DRUGS (4)
  1. FASLODEX [Suspect]
     Indication: BREAST CANCER
     Route: 030
     Dates: start: 20111111
  2. OPIUM/NALOXONE TAB [Concomitant]
     Indication: ANALGESIC THERAPY
     Route: 048
  3. ARCOXIA [Concomitant]
     Indication: ARTHRITIS
     Route: 048
  4. RAMIPRIL [Concomitant]
     Indication: HYPERTENSION
     Route: 048

REACTIONS (1)
  - OSTEONECROSIS OF JAW [None]
